FAERS Safety Report 4463500-4 (Version None)
Quarter: 2004Q3

REPORT INFORMATION
  Report Type: 
  Country: None (occurrence: None)
  Receive Date: 20040930
  Receipt Date: 20040923
  Transmission Date: 20050211
  Serious: Yes (Hospitalization)
  Sender: FDA-Public Use
  Company Number: GB-MERCK-0409GBR00227

PATIENT
  Age: 70 Year
  Sex: Female
  Weight: 55 kg

DRUGS (10)
  1. AMLODIPINE BESYLATE [Concomitant]
     Indication: HYPERTENSION
     Route: 048
  2. CYCLIZINE [Concomitant]
     Route: 048
  3. CYCLOPHOSPHAMIDE [Suspect]
     Indication: BREAST CANCER METASTATIC
     Route: 042
     Dates: start: 20040813, end: 20040813
  4. DECADRON [Suspect]
     Route: 048
     Dates: end: 20040825
  5. FLUOROURACIL [Suspect]
     Indication: BREAST CANCER METASTATIC
     Route: 042
     Dates: start: 20040813, end: 20040813
  6. FUROSEMIDE [Concomitant]
     Route: 048
  7. LANSOPRAZOLE [Concomitant]
     Route: 048
     Dates: start: 20040825
  8. METHOTREXATE [Suspect]
     Indication: BREAST CANCER METASTATIC
     Route: 042
     Dates: start: 20040813, end: 20040813
  9. MORPHINE SULFATE [Concomitant]
     Route: 048
  10. WARFARIN [Concomitant]
     Indication: PULMONARY EMBOLISM
     Route: 065
     Dates: start: 20040601

REACTIONS (3)
  - DYSPNOEA [None]
  - FAECES DISCOLOURED [None]
  - PANCYTOPENIA [None]
